FAERS Safety Report 11888174 (Version 1)
Quarter: 2016Q1

REPORT INFORMATION
  Report Type: Spontaneous
  Country: US (occurrence: None)
  Receive Date: 20160104
  Receipt Date: 20160104
  Transmission Date: 20160526
  Serious: Yes (Other)
  Sender: FDA-Public Use
  Company Number: None

PATIENT
  Age: 64 Year
  Sex: Female
  Weight: 65.77 kg

DRUGS (6)
  1. MULTIVITAMIN [Concomitant]
     Active Substance: VITAMINS
  2. EFFIENT [Concomitant]
     Active Substance: PRASUGREL HYDROCHLORIDE
  3. OTEZLA [Suspect]
     Active Substance: APREMILAST
     Indication: PSORIASIS
     Dosage: 10 MG INCREASING TO 30MG
     Route: 048
  4. LIPITOR [Concomitant]
     Active Substance: ATORVASTATIN CALCIUM
  5. OTEZLA [Suspect]
     Active Substance: APREMILAST
     Indication: PSORIATIC ARTHROPATHY
     Dosage: 10 MG INCREASING TO 30MG
     Route: 048
  6. ASA 81MG [Concomitant]

REACTIONS (8)
  - Dyspnoea [None]
  - Respiratory tract infection [None]
  - Lung infection pseudomonal [None]
  - Intra-abdominal haematoma [None]
  - Arthralgia [None]
  - Muscle rupture [None]
  - Heart rate increased [None]
  - Gait disturbance [None]

NARRATIVE: CASE EVENT DATE: 20151215
